FAERS Safety Report 9850915 (Version 1)
Quarter: 2014Q1

REPORT INFORMATION
  Report Type: Spontaneous
  Country: BR (occurrence: None)
  Receive Date: 20140124
  Receipt Date: 20140124
  Transmission Date: 20141002
  Serious: Yes (Other)
  Sender: FDA-Public Use
  Company Number: AUR-APL-2014-00610

PATIENT
  Sex: Male

DRUGS (7)
  1. ATENOLOL (ATENOLOL) [Suspect]
     Indication: BLOOD PRESSURE
     Dosage: (100 MG), ORAL
     Route: 048
  2. OMEPRAZOLE (OMEPRAZOLE) [Suspect]
     Indication: PROPHYLAXIS
     Dosage: (20 MG), ORAL
     Route: 048
  3. BRILINTA (TICAGRELOR) [Suspect]
     Indication: PRODUCT USED FOR UNKNOWN INDICATION
     Dosage: 180 MG (90 MG, 2 IN 1 D), ORAL
     Route: 048
     Dates: start: 201304
  4. SIMVASTATIN (SIMVASTATIN) [Concomitant]
  5. SUSTRATE (PROPATYNITRATE) [Concomitant]
  6. DONAREN (TRAZODONE HYDROCHLORIDE) [Concomitant]
  7. AAS (ACETYLSALICYLIC ACID) [Concomitant]

REACTIONS (2)
  - Liver disorder [None]
  - Coronary artery restenosis [None]
